FAERS Safety Report 7720026-X (Version None)
Quarter: 2011Q3

REPORT INFORMATION
  Report Type: 
  Country: None (occurrence: None)
  Receive Date: 20110831
  Receipt Date: 20090106
  Transmission Date: 20111222
  Serious: No
  Sender: FDA-Public Use
  Company Number: 2009BI000455

PATIENT
  Age: 46 Year
  Sex: Female

DRUGS (7)
  1. TYSABRI [Suspect]
     Indication: MULTIPLE SCLEROSIS
     Route: 042
     Dates: start: 20080701, end: 20081120
  2. TYSABRI [Suspect]
     Route: 042
     Dates: start: 20110816
  3. REBIF [Concomitant]
  4. IBUPROFEN [Concomitant]
     Indication: RHEUMATOID ARTHRITIS
  5. BENICAR [Concomitant]
     Indication: HYPERTENSION
  6. IBUPROFEN [Concomitant]
     Indication: INFLUENZA LIKE ILLNESS
  7. STEROIDS (NOS) [Concomitant]
     Indication: RHEUMATOID ARTHRITIS
     Dates: start: 20110814, end: 20110823

REACTIONS (4)
  - HYPOTENSION [None]
  - WEIGHT DECREASED [None]
  - BLOOD PRESSURE DECREASED [None]
  - MUSCULAR WEAKNESS [None]
